FAERS Safety Report 4503883-X (Version None)
Quarter: 2004Q4

REPORT INFORMATION
  Report Type: 
  Country: None (occurrence: None)
  Receive Date: 20040928
  Receipt Date: 20040615
  Transmission Date: 20050328
  Serious: No
  Sender: FDA-Public Use
  Company Number: 04P-163-0263816-00

PATIENT
  Age: 58 Year
  Sex: Female
  Weight: 130.6359 kg

DRUGS (12)
  1. HUMIRA [Suspect]
     Indication: RHEUMATOID ARTHRITIS
     Dosage: 40 MG, 1 IN 2 WK, SUBCUTANEOUS
     Route: 058
     Dates: start: 20030101, end: 20040301
  2. HUMIRA [Suspect]
     Indication: RHEUMATOID ARTHRITIS
     Dosage: 40 MG, 1 IN 2 WK, SUBCUTANEOUS
     Route: 058
     Dates: start: 20040601
  3. METHOTREXATE [Concomitant]
  4. FEXOFENADINE HYDROCHLORIDE [Concomitant]
  5. FUROSEMIDE [Concomitant]
  6. ROSIGLITAZONE MALEATE [Concomitant]
  7. RAMIPRIL [Concomitant]
  8. PREDNISONE [Concomitant]
  9. PROPACET 100 [Concomitant]
  10. POTASSIUM CHLORIDE [Concomitant]
  11. FOLIC ACID [Concomitant]
  12. HYDROXYCHLOROQUINE PHOSPHATE [Concomitant]

REACTIONS (2)
  - BRONCHITIS [None]
  - URINARY TRACT INFECTION [None]
